FAERS Safety Report 7158242-0 (Version None)
Quarter: 2010Q4

REPORT INFORMATION
  Report Type: 
  Country: None (occurrence: None)
  Receive Date: 20101214
  Receipt Date: 20100330
  Transmission Date: 20110411
  Serious: No
  Sender: FDA-Public Use
  Company Number: US-ASTRAZENECA-2010SE13965

PATIENT
  Age: 83 Year
  Sex: Female
  Weight: 63.5 kg

DRUGS (10)
  1. CRESTOR [Suspect]
     Route: 048
     Dates: start: 20080101
  2. TOPROL-XL [Concomitant]
     Indication: HYPERTENSION
  3. AVAPRO [Concomitant]
     Indication: HYPERTENSION
  4. PANTOPRAZOLE [Concomitant]
  5. OXYBUTRIN [Concomitant]
     Indication: PAIN
  6. SERTRALINE [Concomitant]
     Indication: DEPRESSION
  7. CRYSTALLINE VIT B12 INJ [Concomitant]
     Indication: VITAMIN B12 DEFICIENCY
  8. ASPIRIN [Concomitant]
  9. B-12 TABLETS [Concomitant]
     Indication: VITAMIN B12 DEFICIENCY
  10. FOLIC ACID [Concomitant]

REACTIONS (2)
  - GAIT DISTURBANCE [None]
  - MYALGIA [None]
